FAERS Safety Report 14973741 (Version 1)
Quarter: 2018Q2

REPORT INFORMATION
  Report Type: Spontaneous
  Country: FR (occurrence: FR)
  Receive Date: 20180605
  Receipt Date: 20180605
  Transmission Date: 20180711
  Serious: Yes (Death)
  Sender: FDA-Public Use
  Company Number: FR-TEVA-2018-FR-901733

PATIENT
  Sex: Female

DRUGS (4)
  1. BUPRENORPHINE. [Suspect]
     Active Substance: BUPRENORPHINE
     Route: 065
  2. ALCOOL [Suspect]
     Active Substance: ALCOHOL
     Route: 048
  3. BROMAZEPAM [Suspect]
     Active Substance: BROMAZEPAM
     Route: 048
  4. OXAZEPAM AYERST [Suspect]
     Active Substance: OXAZEPAM
     Route: 048

REACTIONS (4)
  - Drug abuser [Fatal]
  - Respiratory depression [Fatal]
  - Drug dependence [Fatal]
  - Asphyxia [Fatal]
